FAERS Safety Report 22645208 (Version 1)
Quarter: 2023Q2

REPORT INFORMATION
  Report Type: Spontaneous
  Country: US (occurrence: None)
  Receive Date: 20230626
  Receipt Date: 20230626
  Transmission Date: 20230722
  Serious: No
  Sender: FDA-Public Use
  Company Number: None

PATIENT
  Age: 41 Year
  Sex: Male
  Weight: 113.4 kg

DRUGS (3)
  1. BUPROPION XL [Suspect]
     Active Substance: BUPROPION HYDROCHLORIDE
     Dosage: OTHER QUANTITY : 1 TABLET(S);?FREQUENCY : DAILY;?
     Route: 048
     Dates: start: 20230525, end: 20230614
  2. METOPROLOL [Concomitant]
     Active Substance: METOPROLOL
  3. ALLEGRA [Concomitant]
     Active Substance: FEXOFENADINE HYDROCHLORIDE

REACTIONS (5)
  - Anxiety [None]
  - Panic attack [None]
  - Hot flush [None]
  - Hyperhidrosis [None]
  - Dysgeusia [None]

NARRATIVE: CASE EVENT DATE: 20230614
